FAERS Safety Report 14092578 (Version 4)
Quarter: 2017Q4

REPORT INFORMATION
  Report Type: Spontaneous
  Country: BR (occurrence: BR)
  Receive Date: 20171016
  Receipt Date: 20171208
  Transmission Date: 20180321
  Serious: Yes (Hospitalization)
  Sender: FDA-Public Use
  Company Number: BR-PFIZER INC-2017437948

PATIENT
  Age: 58 Year
  Sex: Female

DRUGS (8)
  1. DOSTINEX [Suspect]
     Active Substance: CABERGOLINE
     Indication: BLOOD PROLACTIN INCREASED
     Dosage: 6 TABLETS OF 0.5MG (3 MG), WEEKLY
     Route: 048
  2. LOTAR [Concomitant]
     Active Substance: AMLODIPINE\LOSARTAN
     Indication: BLOOD PRESSURE ABNORMAL
     Dosage: 5/50
     Dates: start: 1992
  3. DOSTINEX [Suspect]
     Active Substance: CABERGOLINE
     Dosage: 5 TABLETS OF 0.5MG (2.5 MG), WEEKLY
  4. DOSTINEX [Suspect]
     Active Substance: CABERGOLINE
     Dosage: 5 TABLETS PER WEEK
  5. ROSUVASTATIN CALCIUM. [Concomitant]
     Active Substance: ROSUVASTATIN CALCIUM
     Dosage: UNK
     Dates: start: 201708
  6. DOSTINEX [Suspect]
     Active Substance: CABERGOLINE
     Dosage: 6 TABLETS OF 0.5MG (3 MG), WEEKLY
     Dates: start: 20171031
  7. VITAMIN D [Concomitant]
     Active Substance: CHOLECALCIFEROL
     Dosage: UNK
     Dates: start: 2016
  8. DOSTINEX [Suspect]
     Active Substance: CABERGOLINE
     Indication: PITUITARY TUMOUR BENIGN
     Dosage: 3 TABLETS OF 0.5MG PER WEEK
     Route: 048
     Dates: start: 2015

REACTIONS (8)
  - Mouth haemorrhage [Recovered/Resolved]
  - Drug ineffective [Not Recovered/Not Resolved]
  - Aneurysm [Recovered/Resolved]
  - Epistaxis [Recovered/Resolved]
  - Sensory loss [Recovered/Resolved]
  - Arterial injury [Recovered/Resolved]
  - Anaemia [Unknown]
  - Arthralgia [Not Recovered/Not Resolved]

NARRATIVE: CASE EVENT DATE: 2015
